FAERS Safety Report 9692789 (Version 1)
Quarter: 2013Q4

REPORT INFORMATION
  Report Type: Spontaneous
  Country: US (occurrence: None)
  Receive Date: 20131115
  Receipt Date: 20131115
  Transmission Date: 20140711
  Serious: Yes (Hospitalization)
  Sender: FDA-Public Use
  Company Number: None

PATIENT
  Age: 27 None
  Sex: Male
  Weight: 86 kg

DRUGS (1)
  1. VENLAFAXINE [Suspect]
     Indication: BIPOLAR DISORDER
     Route: 048
     Dates: start: 20130606

REACTIONS (4)
  - Nightmare [None]
  - Suicidal ideation [None]
  - Depression [None]
  - Suicide attempt [None]
